FAERS Safety Report 18410031 (Version 7)
Quarter: 2025Q2

REPORT INFORMATION
  Report Type: Report from Study
  Country: ES (occurrence: ES)
  Receive Date: 20201021
  Receipt Date: 20250624
  Transmission Date: 20250716
  Serious: Yes (Death, Other)
  Sender: AUROBINDO
  Company Number: ES-PFIZER INC-2020358521

PATIENT
  Age: 52 Year
  Sex: Male

DRUGS (13)
  1. VORICONAZOLE [Suspect]
     Active Substance: VORICONAZOLE
     Indication: Aspergillus infection
     Dosage: 400 MILLIGRAM, TWO TIMES A DAY (800 MILLIGRAM, ONCE A DAY)
     Route: 042
     Dates: start: 20200405, end: 20200409
  2. CRESEMBA [Suspect]
     Active Substance: ISAVUCONAZONIUM SULFATE
     Indication: Bronchopulmonary aspergillosis
     Dosage: 200 MILLIGRAM, 3 TIMES A DAY (600 MILLIGRAM, ONCE A DAY)
     Route: 042
     Dates: start: 20200410, end: 20200411
  3. CRESEMBA [Suspect]
     Active Substance: ISAVUCONAZONIUM SULFATE
     Indication: Aspergillus infection
     Dosage: 200 MILLIGRAM, 3 TIMES A DAY
     Route: 042
     Dates: start: 20200410, end: 20200411
  4. CRESEMBA [Suspect]
     Active Substance: ISAVUCONAZONIUM SULFATE
     Dosage: 200 MILLIGRAM, ONCE A DAY
     Route: 042
     Dates: start: 20200412, end: 20200416
  5. CEFTRIAXONE SODIUM [Concomitant]
     Active Substance: CEFTRIAXONE SODIUM
     Indication: Product used for unknown indication
     Route: 065
  6. HYDROXYCHLOROQUINE [Concomitant]
     Active Substance: HYDROXYCHLOROQUINE
     Indication: COVID-19
     Route: 065
  7. INTERFERON BETA-1B [Concomitant]
     Active Substance: INTERFERON BETA-1B
     Indication: COVID-19
     Route: 065
  8. LINEZOLID [Concomitant]
     Active Substance: LINEZOLID
     Indication: Product used for unknown indication
     Route: 065
  9. LOPINAVIR\RITONAVIR [Concomitant]
     Active Substance: LOPINAVIR\RITONAVIR
     Indication: COVID-19
     Route: 065
  10. PIPERACILLIN AND TAZOBACTAM [Concomitant]
     Active Substance: PIPERACILLIN SODIUM\TAZOBACTAM SODIUM
     Indication: Product used for unknown indication
     Route: 065
  11. TOCILIZUMAB [Concomitant]
     Active Substance: TOCILIZUMAB
     Indication: Product used for unknown indication
     Route: 065
  12. TOCILIZUMAB [Concomitant]
     Active Substance: TOCILIZUMAB
     Indication: Respiratory distress
  13. TOCILIZUMAB [Concomitant]
     Active Substance: TOCILIZUMAB
     Indication: Inflammation

REACTIONS (2)
  - Septic shock [Fatal]
  - Respiratory failure [Fatal]

NARRATIVE: CASE EVENT DATE: 20200417
